FAERS Safety Report 5144383-6 (Version None)
Quarter: 2006Q4

REPORT INFORMATION
  Report Type: 
  Country: None (occurrence: None)
  Receive Date: 20061030
  Receipt Date: 20061026
  Transmission Date: 20070319
  Serious: No
  Sender: FDA-Public Use
  Company Number: S06-USA-04502-01

PATIENT
  Age: 52 Year
  Sex: Female

DRUGS (3)
  1. CELEXA [Suspect]
     Indication: DEPRESSION
     Dosage: 20 MG QD PO
     Route: 048
     Dates: start: 20021101
  2. ZOCOR [Concomitant]
  3. ASPIRIN [Concomitant]

REACTIONS (5)
  - CARDIAC OPERATION [None]
  - CRYING [None]
  - INSOMNIA [None]
  - NEGATIVE THOUGHTS [None]
  - PHARMACEUTICAL PRODUCT COMPLAINT [None]
